FAERS Safety Report 4463083-9 (Version None)
Quarter: 2004Q3

REPORT INFORMATION
  Report Type: 
  Country: None (occurrence: None)
  Receive Date: 20040928
  Receipt Date: 20040916
  Transmission Date: 20050211
  Serious: Yes (Other)
  Sender: FDA-Public Use
  Company Number: K200401427

PATIENT
  Age: 62 Year
  Sex: Male
  Weight: 76.2 kg

DRUGS (5)
  1. LEVOXYL [Suspect]
     Indication: SLEEP APNOEA SYNDROME
     Dosage: SEE IMAGE
     Dates: start: 20040401, end: 20040801
  2. LEVOXYL [Suspect]
     Indication: SLEEP APNOEA SYNDROME
     Dosage: SEE IMAGE
     Dates: start: 20040901, end: 20040908
  3. CLONAZEPAM [Suspect]
     Indication: MUSCLE RELAXANT THERAPY
     Dosage: SEE IMAGE
     Route: 048
     Dates: start: 19910101, end: 20040826
  4. CLONAZEPAM [Suspect]
     Indication: MUSCLE RELAXANT THERAPY
     Dosage: SEE IMAGE
     Route: 048
     Dates: start: 20040827, end: 20040901
  5. CLONAZEPAM [Suspect]
     Indication: MUSCLE RELAXANT THERAPY
     Dosage: SEE IMAGE
     Route: 048
     Dates: start: 20040901

REACTIONS (18)
  - CONFUSIONAL STATE [None]
  - DELIRIUM [None]
  - DEPERSONALISATION [None]
  - DEREALISATION [None]
  - DISSOCIATIVE AMNESIA [None]
  - DISSOCIATIVE DISORDER [None]
  - DRUG INTERACTION [None]
  - DRUG WITHDRAWAL SYNDROME [None]
  - EMOTIONAL DISORDER [None]
  - FEELING ABNORMAL [None]
  - HALLUCINATION, VISUAL [None]
  - HEAD DISCOMFORT [None]
  - HYPERACUSIS [None]
  - OVERDOSE [None]
  - PALPITATIONS [None]
  - SENSORY DISTURBANCE [None]
  - THINKING ABNORMAL [None]
  - WEIGHT INCREASED [None]
